FAERS Safety Report 14868079 (Version 1)
Quarter: 2018Q2

REPORT INFORMATION
  Report Type: Spontaneous
  Country: FR (occurrence: FR)
  Receive Date: 20180509
  Receipt Date: 20180509
  Transmission Date: 20180711
  Serious: Yes (Hospitalization)
  Sender: FDA-Public Use
  Company Number: FR-ROCHE-2118547

PATIENT
  Age: 66 Year
  Sex: Female
  Weight: 64 kg

DRUGS (3)
  1. HERCEPTIN [Suspect]
     Active Substance: TRASTUZUMAB
     Indication: BREAST CANCER
     Route: 041
  2. MEDROL [Suspect]
     Active Substance: METHYLPREDNISOLONE
     Indication: ADJUVANT THERAPY
     Route: 048
     Dates: start: 20180208, end: 20180210
  3. DOCETAXEL ACCORD [Suspect]
     Active Substance: DOCETAXEL
     Indication: BREAST CANCER
     Route: 041

REACTIONS (3)
  - Dizziness [Recovered/Resolved]
  - Hyponatraemia [Recovered/Resolved]
  - Oral infection [Recovered/Resolved]

NARRATIVE: CASE EVENT DATE: 20180216
